FAERS Safety Report 21327834 (Version 1)
Quarter: 2022Q3

REPORT INFORMATION
  Report Type: Spontaneous
  Country: DE (occurrence: DE)
  Receive Date: 20220913
  Receipt Date: 20220913
  Transmission Date: 20221027
  Serious: Yes (Other)
  Sender: FDA-Public Use
  Company Number: DE-NOVARTISPH-NVSC2022DE205310

PATIENT
  Age: 73 Year
  Sex: Female

DRUGS (2)
  1. CARBAMAZEPINE [Suspect]
     Active Substance: CARBAMAZEPINE
     Indication: Product used for unknown indication
     Dosage: UNK
     Route: 065
  2. NEURONTIN [Suspect]
     Active Substance: GABAPENTIN
     Indication: Trigeminal nerve disorder
     Dosage: 600 MG, 3X/DAY
     Route: 065

REACTIONS (4)
  - Drug dependence [Unknown]
  - Depression [Unknown]
  - Off label use [Unknown]
  - Memory impairment [Unknown]
